FAERS Safety Report 9517897 (Version 1)
Quarter: 2013Q3

REPORT INFORMATION
  Report Type: Spontaneous
  Country: US (occurrence: None)
  Receive Date: 20130910
  Receipt Date: 20130910
  Transmission Date: 20140515
  Serious: Yes (Other)
  Sender: FDA-Public Use
  Company Number: None

PATIENT
  Age: 82 Year
  Sex: Female

DRUGS (10)
  1. SENSIPAR [Suspect]
     Indication: HYPERPARATHYROIDISM
     Dosage: 1 PILL (TABLET), ONCE DAILY
     Route: 048
     Dates: start: 20130718, end: 20130718
  2. GREENFIELD FILTER [Concomitant]
  3. ENOXAPRIN [Concomitant]
  4. RAMIPRIL [METAMUCIL] [Concomitant]
  5. EPI PEN [Concomitant]
  6. KLOR-KON [Concomitant]
  7. MULTI VITAMINS [Concomitant]
  8. MAGNESUM [Concomitant]
  9. B-12 [Concomitant]
  10. VITAMIN D [Concomitant]

REACTIONS (5)
  - Dyspnoea [None]
  - Chest discomfort [None]
  - Lethargy [None]
  - Amnesia [None]
  - Slow response to stimuli [None]
